FAERS Safety Report 9323615 (Version 2)
Quarter: 2013Q3

REPORT INFORMATION
  Report Type: Spontaneous
  Country: JP (occurrence: JP)
  Receive Date: 20130603
  Receipt Date: 20130703
  Transmission Date: 20140515
  Serious: Yes (Hospitalization)
  Sender: FDA-Public Use
  Company Number: JP-JNJFOC-20130519103

PATIENT
  Age: 87 Year
  Sex: Male
  Weight: 46.26 kg

DRUGS (8)
  1. XARELTO [Suspect]
     Indication: CEREBROVASCULAR ACCIDENT PROPHYLAXIS
     Dosage: ONCE IN MORNING
     Route: 048
     Dates: start: 20130502, end: 20130521
  2. XARELTO [Suspect]
     Indication: ATRIAL FIBRILLATION
     Dosage: ONCE IN MORNING
     Route: 048
     Dates: start: 20130502, end: 20130521
  3. BAYASPIRIN [Concomitant]
     Route: 048
  4. NEXIUM [Concomitant]
     Route: 048
  5. LIVALO [Concomitant]
     Route: 048
  6. DIGOXIN [Concomitant]
     Route: 048
  7. DIART [Concomitant]
     Route: 048
  8. ALDACTONE A [Concomitant]
     Route: 048

REACTIONS (3)
  - Embolic cerebral infarction [Recovered/Resolved with Sequelae]
  - Petechiae [Unknown]
  - Drug ineffective [Unknown]
